FAERS Safety Report 7000419-9 (Version None)
Quarter: 2010Q3

REPORT INFORMATION
  Report Type: 
  Country: None (occurrence: None)
  Receive Date: 20100920
  Receipt Date: 20090904
  Transmission Date: 20110219
  Serious: Yes (Hospitalization, Other)
  Sender: FDA-Public Use
  Company Number: US-ASTRAZENECA-2009SE11525

PATIENT
  Sex: Male

DRUGS (5)
  1. SEROQUEL [Suspect]
     Route: 048
  2. SEROQUEL [Suspect]
     Route: 048
  3. CLONOPIN [Suspect]
  4. THORAZINE [Concomitant]
  5. BENADRYL [Concomitant]

REACTIONS (7)
  - CONVULSION [None]
  - DELIRIUM [None]
  - ILL-DEFINED DISORDER [None]
  - INSOMNIA [None]
  - OVERDOSE [None]
  - PSYCHOTIC DISORDER [None]
  - WITHDRAWAL SYNDROME [None]
